FAERS Safety Report 18202979 (Version 2)
Quarter: 2020Q3

REPORT INFORMATION
  Report Type: Spontaneous
  Country: US (occurrence: US)
  Receive Date: 20200827
  Receipt Date: 20200831
  Transmission Date: 20201103
  Serious: No
  Sender: FDA-Public Use
  Company Number: US-BAYER-2020-178623

PATIENT
  Age: 55 Year
  Sex: Female

DRUGS (2)
  1. CLIMARA PRO [Suspect]
     Active Substance: ESTRADIOL\LEVONORGESTREL
     Indication: HOT FLUSH
     Dosage: UNK
     Route: 062
     Dates: start: 202001
  2. CLIMARA PRO [Suspect]
     Active Substance: ESTRADIOL\LEVONORGESTREL
     Indication: POSTMENOPAUSE

REACTIONS (5)
  - Wrong technique in device usage process [None]
  - Blood oestrogen decreased [None]
  - Insomnia [Not Recovered/Not Resolved]
  - Product adhesion issue [None]
  - Hot flush [Not Recovered/Not Resolved]
